FAERS Safety Report 20853809 (Version 1)
Quarter: 2022Q2

REPORT INFORMATION
  Report Type: Spontaneous
  Country: US (occurrence: US)
  Receive Date: 20220520
  Receipt Date: 20220520
  Transmission Date: 20220721
  Serious: Yes (Hospitalization, Disabling, Other)
  Sender: FDA-Public Use
  Company Number: US-REGENERON PHARMACEUTICALS, INC.-2022-066798

PATIENT
  Sex: Female

DRUGS (1)
  1. EYLEA [Suspect]
     Active Substance: AFLIBERCEPT
     Indication: Macular degeneration
     Dosage: UNK (FORMULATION: INJECTION)

REACTIONS (3)
  - Herpes zoster [Unknown]
  - Meningitis [Unknown]
  - Gait inability [Unknown]

NARRATIVE: CASE EVENT DATE: 20220101
